FAERS Safety Report 4301389-4 (Version None)
Quarter: 2004Q1

REPORT INFORMATION
  Report Type: 
  Country: None (occurrence: None)
  Receive Date: 20040223
  Receipt Date: 20031010
  Transmission Date: 20041129
  Serious: Yes (Other)
  Sender: FDA-Public Use
  Company Number: US-GLAXOSMITHKLINE-A0429817A

PATIENT
  Age: 71 Year
  Sex: Male

DRUGS (4)
  1. NAVELBINE [Suspect]
     Indication: NON-SMALL CELL LUNG CANCER
     Route: 042
     Dates: start: 20031008, end: 20031008
  2. KYTRIL [Concomitant]
  3. UNKNOWN MEDICATION [Concomitant]
  4. TIGAN [Concomitant]

REACTIONS (1)
  - INJECTION SITE REACTION [None]
